FAERS Safety Report 23201097 (Version 1)
Quarter: 2023Q4

REPORT INFORMATION
  Report Type: Spontaneous
  Country: FR (occurrence: FR)
  Receive Date: 20231118
  Receipt Date: 20231118
  Transmission Date: 20240110
  Serious: Yes (Hospitalization)
  Sender: FDA-Public Use
  Company Number: None

PATIENT
  Age: 68 Year
  Sex: Male
  Weight: 84 kg

DRUGS (1)
  1. AMOXICILLIN [Suspect]
     Active Substance: AMOXICILLIN
     Indication: Arthritis bacterial
     Dosage: UNIT DOSE:3GM,FREQUENCY TIME:1 DAYS,DURATION:16 DAYS
     Dates: start: 20230618, end: 20230704

REACTIONS (3)
  - Eosinophilia [Recovered/Resolved]
  - Petechiae [Recovered/Resolved]
  - Pruritus [Recovered/Resolved]

NARRATIVE: CASE EVENT DATE: 20230704
